FAERS Safety Report 5928126-1 (Version None)
Quarter: 2008Q4

REPORT INFORMATION
  Report Type: 
  Country: None (occurrence: None)
  Receive Date: 20081022
  Receipt Date: 20081022
  Transmission Date: 20090506
  Serious: Yes (Other)
  Sender: FDA-Public Use
  Company Number: None

PATIENT
  Sex: Male
  Weight: 70 kg

DRUGS (3)
  1. CIPROFLOXACIN [Suspect]
     Dates: start: 20080925, end: 20081001
  2. RISPERIDONE [Suspect]
     Dates: start: 20080925, end: 20081001
  3. HALDOL [Suspect]
     Dates: start: 20080925, end: 20081001

REACTIONS (1)
  - ELECTROCARDIOGRAM QT PROLONGED [None]
